FAERS Safety Report 7994122-6 (Version None)
Quarter: 2011Q4

REPORT INFORMATION
  Report Type: 
  Country: None (occurrence: None)
  Receive Date: 20111220
  Receipt Date: 20111208
  Transmission Date: 20120403
  Serious: Yes (Other)
  Sender: FDA-Public Use
  Company Number: CA-JNJFOC-20111205294

PATIENT
  Sex: Female
  Weight: 73.3 kg

DRUGS (3)
  1. MICARDIS [Concomitant]
     Route: 065
  2. REMICADE [Suspect]
     Indication: RHEUMATOID ARTHRITIS
     Route: 042
     Dates: start: 20050701
  3. PAXIL [Concomitant]
     Route: 065

REACTIONS (2)
  - BLOOD URINE PRESENT [None]
  - MICTURITION URGENCY [None]
